FAERS Safety Report 5209185-0 (Version None)
Quarter: 2006Q4

REPORT INFORMATION
  Report Type: 
  Country: None (occurrence: None)
  Receive Date: 20061226
  Receipt Date: 20061222
  Transmission Date: 20070319
  Serious: Yes (Hospitalization)
  Sender: FDA-Public Use
  Company Number: 200610980

PATIENT
  Age: 69 Year
  Sex: Male
  Weight: 79 kg

DRUGS (2)
  1. IMMUNE GLOBULIN (HUMAN) [Suspect]
     Indication: IMMUNODEFICIENCY
     Dosage: 10 ONCE IV
     Route: 042
     Dates: start: 20061214, end: 20061214
  2. IMMUNE GLOBULIN (HUMAN) [Suspect]
     Indication: NON-HODGKIN'S LYMPHOMA
     Dosage: 10 ONCE IV
     Route: 042
     Dates: start: 20061214, end: 20061214

REACTIONS (6)
  - ARRHYTHMIA [None]
  - BLOOD PRESSURE DECREASED [None]
  - CHILLS [None]
  - HYPERSENSITIVITY [None]
  - TACHYCARDIA [None]
  - URINARY INCONTINENCE [None]
